FAERS Safety Report 14145563 (Version 1)
Quarter: 2017Q4

REPORT INFORMATION
  Report Type: Spontaneous
  Country: US (occurrence: US)
  Receive Date: 20171030
  Receipt Date: 20171030
  Transmission Date: 20180321
  Serious: Yes (Other)
  Sender: FDA-Public Use
  Company Number: None

PATIENT
  Age: 40 Year
  Sex: Male
  Weight: 74.25 kg

DRUGS (1)
  1. PICATO [Suspect]
     Active Substance: INGENOL MEBUTATE
     Indication: ANOGENITAL WARTS
     Route: 061

REACTIONS (3)
  - Application site pain [None]
  - Application site erythema [None]
  - Application site swelling [None]

NARRATIVE: CASE EVENT DATE: 20171027
